FAERS Safety Report 24939413 (Version 2)
Quarter: 2025Q3

REPORT INFORMATION
  Report Type: Spontaneous
  Country: CA (occurrence: CA)
  Receive Date: 20250206
  Receipt Date: 20250802
  Transmission Date: 20251020
  Serious: Yes (Other)
  Sender: ALEXION PHARMACEUTICALS
  Company Number: 001108495

PATIENT
  Age: 54 Year
  Sex: Male

DRUGS (3)
  1. BRILINTA [Suspect]
     Active Substance: TICAGRELOR
     Dosage: 90 MILLIGRAM, BID
  2. ASPIRIN [Suspect]
     Active Substance: ASPIRIN
     Dosage: 80 MILLIGRAM, QD
  3. HEPARIN [Suspect]
     Active Substance: HEPARIN SODIUM

REACTIONS (5)
  - Anaemia [Recovered/Resolved]
  - Haemolysis [Recovered/Resolved]
  - Haemorrhage [Recovered/Resolved]
  - Inflammation [Recovered/Resolved]
  - Thrombocytopenia [Recovered/Resolved]
